FAERS Safety Report 9714935 (Version 1)
Quarter: 2013Q4

REPORT INFORMATION
  Report Type: Spontaneous
  Country: IT (occurrence: None)
  Receive Date: 20131125
  Receipt Date: 20131125
  Transmission Date: 20140711
  Serious: Yes (Other)
  Sender: FDA-Public Use
  Company Number: AUR-APL-2013-09718

PATIENT
  Age: 54 Year
  Sex: Male

DRUGS (1)
  1. AMOXICILLIN (AMOXICILLIN) [Suspect]
     Indication: SIALOADENITIS
     Dosage: 1 DOSAGE FORMS, TOTAL ORAL
     Route: 048
     Dates: start: 20131029, end: 20131029

REACTIONS (4)
  - Hyperhidrosis [None]
  - Hypotension [None]
  - Malaise [None]
  - Pruritus [None]
